FAERS Safety Report 14612515 (Version 2)
Quarter: 2018Q1

REPORT INFORMATION
  Report Type: Spontaneous
  Country: US (occurrence: US)
  Receive Date: 20180308
  Receipt Date: 20180312
  Transmission Date: 20180509
  Serious: No
  Sender: FDA-Public Use
  Company Number: US-GLAXOSMITHKLINE-US2018038334

PATIENT
  Sex: Female

DRUGS (2)
  1. VENTOLIN HFA [Suspect]
     Active Substance: ALBUTEROL SULFATE
     Indication: CHEST DISCOMFORT
  2. VENTOLIN HFA [Suspect]
     Active Substance: ALBUTEROL SULFATE
     Indication: DYSPNOEA
     Dosage: 1 PUFF(S), PRN
     Route: 055

REACTIONS (6)
  - Nasopharyngitis [Unknown]
  - Drug dose omission [Unknown]
  - Dyspnoea [Unknown]
  - Aphonia [Unknown]
  - Oropharyngeal pain [Unknown]
  - Wrong technique in device usage process [Unknown]
